FAERS Safety Report 10101640 (Version 1)
Quarter: 2014Q2

REPORT INFORMATION
  Report Type: Spontaneous
  Country: ID (occurrence: None)
  Receive Date: 20140422
  Receipt Date: 20140422
  Transmission Date: 20141212
  Serious: Yes (Life-Threatening, Hospitalization)
  Sender: FDA-Public Use
  Company Number: 2014P1003175

PATIENT
  Age: 25 Year
  Sex: Female

DRUGS (4)
  1. ISONIAZID [Suspect]
     Indication: PULMONARY TUBERCULOSIS
     Dates: start: 201201, end: 2012
  2. RIFAMPICIN [Suspect]
     Indication: PULMONARY TUBERCULOSIS
     Dates: start: 201201, end: 2012
  3. ETHAMBUTOL [Concomitant]
  4. PYRASINAMID [Concomitant]

REACTIONS (1)
  - Anaphylactic reaction [None]
